FAERS Safety Report 9754710 (Version 1)
Quarter: 2013Q4

REPORT INFORMATION
  Report Type: Spontaneous
  Country: US (occurrence: US)
  Receive Date: 20131213
  Receipt Date: 20131213
  Transmission Date: 20140711
  Serious: No
  Sender: FDA-Public Use
  Company Number: US-GLAXOSMITHKLINE-A1004818A

PATIENT
  Age: 52 Year
  Sex: Female

DRUGS (2)
  1. NICODERM CQ CLEAR 21MG [Suspect]
     Indication: SMOKING CESSATION THERAPY
     Dates: start: 20121110
  2. NICORETTE GUM [Suspect]
     Route: 002
     Dates: start: 20121115, end: 20121130

REACTIONS (5)
  - Application site rash [Recovered/Resolved]
  - Diarrhoea [Recovered/Resolved]
  - Cough [Recovered/Resolved]
  - Malaise [Recovered/Resolved]
  - Gastric disorder [Recovered/Resolved]
